FAERS Safety Report 9071861 (Version 1)
Quarter: 2013Q1

REPORT INFORMATION
  Report Type: Spontaneous
  Country: GB (occurrence: GB)
  Receive Date: 20130129
  Receipt Date: 20130129
  Transmission Date: 20140127
  Serious: Yes (Other)
  Sender: FDA-Public Use
  Company Number: GB-ROCHE-1184328

PATIENT
  Age: 14 Year
  Sex: Female
  Weight: 80 kg

DRUGS (7)
  1. XOLAIR [Suspect]
     Indication: ASTHMA
     Route: 058
     Dates: end: 201210
  2. XOLAIR [Suspect]
     Route: 058
  3. PREDNISOLONE [Concomitant]
  4. SERETIDE [Concomitant]
  5. ALVESCO [Concomitant]
  6. CETIRIZINE [Concomitant]
  7. CICLESONIDE [Concomitant]
     Route: 065

REACTIONS (1)
  - Presyncope [Recovering/Resolving]
